FAERS Safety Report 9565788 (Version 2)
Quarter: 2013Q4

REPORT INFORMATION
  Report Type: Spontaneous
  Country: FR (occurrence: FR)
  Receive Date: 20130930
  Receipt Date: 20131009
  Transmission Date: 20140711
  Serious: Yes (Other)
  Sender: FDA-Public Use
  Company Number: FR-VIIV HEALTHCARE LIMITED-B0925006A

PATIENT
  Sex: Female

DRUGS (3)
  1. TRIZIVIR [Suspect]
     Indication: HIV INFECTION
     Route: 048
     Dates: end: 2012
  2. NORVIR [Concomitant]
     Indication: HIV INFECTION
     Route: 065
  3. VIRACEPT [Concomitant]
     Indication: HIV INFECTION
     Route: 065

REACTIONS (4)
  - Lipodystrophy acquired [Not Recovered/Not Resolved]
  - Musculoskeletal pain [Not Recovered/Not Resolved]
  - Hair growth abnormal [Not Recovered/Not Resolved]
  - Hypertriglyceridaemia [Not Recovered/Not Resolved]
